FAERS Safety Report 7372795-9 (Version None)
Quarter: 2011Q1

REPORT INFORMATION
  Report Type: 
  Country: None (occurrence: None)
  Receive Date: 20110324
  Receipt Date: 20110315
  Transmission Date: 20110831
  Serious: Yes (Hospitalization)
  Sender: FDA-Public Use
  Company Number: FR-ROCHE-765966

PATIENT
  Sex: Female
  Weight: 40 kg

DRUGS (12)
  1. CONTRAMAL [Concomitant]
     Dates: start: 20110309, end: 20110313
  2. PARACETAMOL [Concomitant]
     Dates: start: 20100309
  3. BEVACIZUMAB [Suspect]
     Indication: SARCOMA METASTATIC
     Dosage: FREQUENCY: DAY 1. DOSAGE FORM: 7.5 MG/KG. DATE OF LAST DOSE PRIOR TO SAE: 02 MARCH 2011.
     Route: 042
     Dates: start: 20110302
  4. NORDETTE-21 [Concomitant]
     Dosage: TOTAL DAILY DOSE: 1 EP
     Dates: start: 20110302
  5. VINCRISTINE [Suspect]
     Indication: SARCOMA METASTATIC
     Dosage: FREQUENCY: X 3/ CURE.  DAY-1 DAY-8 DAY-15. FORM: 15 MG/M2. DATE LAST DOSE PRIOR TO SAE: 09 MAR 2011
     Route: 042
     Dates: start: 20110302
  6. FOLEX [Concomitant]
     Dosage: TOTAL DAILY DOSE: 4 SACHETS
     Dates: start: 20110302
  7. IFOSFAMIDUM [Suspect]
     Indication: SARCOMA METASTATIC
     Dosage: FREQUENCY: DAY 1- DAY 2. DOSAGE FORM 3 GM/M2. DATE OF LAST DOSE PRIOR TO SAE: 03 MARCH 2011.
     Route: 042
     Dates: start: 20110302
  8. ACTINOMYCIN D [Suspect]
     Indication: SARCOMA METASTATIC
     Dosage: FREQUENCY: DAY 1. DOSAGE FORM: 15MG/M2. DATE OF LAST DOSE PRIOR TO SAE: 02 MARCH 2011.
     Route: 042
     Dates: start: 20110302
  9. RIVOTRIL [Concomitant]
     Dosage: TDD: 12 GTTES.
     Dates: start: 20110305
  10. DOXORUBICINE [Suspect]
     Indication: SARCOMA METASTATIC
     Dosage: FREQUENCY: DAY 1 AND DAY 2. DOSAGE FORM: 30 MG/M2. DATE OF LAST DOSE PRIOR TO SAE: 04 MARCH 2011.
     Route: 042
     Dates: start: 20110303
  11. SOLUPRED [Concomitant]
     Dates: start: 20110309
  12. LOVENOX [Concomitant]
     Dates: start: 20110301

REACTIONS (2)
  - MUCOSAL INFLAMMATION [None]
  - FEBRILE BONE MARROW APLASIA [None]
